FAERS Safety Report 5162615-5 (Version None)
Quarter: 2006Q4

REPORT INFORMATION
  Report Type: 
  Country: None (occurrence: None)
  Receive Date: 20061201
  Receipt Date: 20060620
  Transmission Date: 20070319
  Serious: Yes (Life-Threatening, Hospitalization)
  Sender: FDA-Public Use
  Company Number: GB-BRISTOL-MYERS SQUIBB COMPANY-13421300

PATIENT
  Age: 69 Year
  Sex: Male

DRUGS (21)
  1. CETUXIMAB [Suspect]
     Indication: COLORECTAL CANCER METASTATIC
     Route: 041
     Dates: start: 20050704, end: 20060719
  2. IRINOTECAN HCL [Suspect]
     Indication: COLORECTAL CANCER METASTATIC
     Route: 042
     Dates: start: 20050704, end: 20060119
  3. LEUCOVORIN CALCIUM [Suspect]
     Indication: COLORECTAL CANCER METASTATIC
     Route: 042
     Dates: start: 20050704, end: 20060119
  4. FLUOROURACIL [Suspect]
     Indication: COLORECTAL CANCER METASTATIC
     Route: 042
     Dates: start: 20050704, end: 20060119
  5. GRANISETRON [Concomitant]
  6. DEXAMETHASONE TAB [Concomitant]
  7. OMEPRAZOLE [Concomitant]
  8. MORPHINE SULFATE [Concomitant]
  9. DOMPERIDONE [Concomitant]
  10. LISINOPRIL [Concomitant]
  11. ACETAMINOPHEN [Concomitant]
  12. NYSTATIN [Concomitant]
  13. LACTULOSE [Concomitant]
  14. MEBEVERINE [Concomitant]
  15. CHLORPHENIRAMINE MALEATE [Concomitant]
  16. ATROPINE [Concomitant]
  17. MORPHINE [Concomitant]
  18. LOPERAMIDE [Concomitant]
  19. CALAMINE LOTION [Concomitant]
  20. CODEINE [Concomitant]
  21. METFORMIN [Concomitant]
     Indication: DIABETES MELLITUS NON-INSULIN-DEPENDENT

REACTIONS (12)
  - AREFLEXIA [None]
  - BACK PAIN [None]
  - CEREBRAL HAEMORRHAGE [None]
  - CONVULSION [None]
  - DIABETES MELLITUS NON-INSULIN-DEPENDENT [None]
  - HEMIPARESIS [None]
  - HYPERTENSION [None]
  - IMMOBILE [None]
  - INCONTINENCE [None]
  - LOSS OF CONSCIOUSNESS [None]
  - PAIN [None]
  - PAIN IN EXTREMITY [None]
